FAERS Safety Report 12387407 (Version 2)
Quarter: 2016Q2

REPORT INFORMATION
  Report Type: Report from Study
  Country: DE (occurrence: DE)
  Receive Date: 20160519
  Receipt Date: 20160524
  Transmission Date: 20160815
  Serious: Yes (Death, Other)
  Sender: FDA-Public Use
  Company Number: PHHY2016DE066832

PATIENT
  Age: 49 Year
  Sex: Male

DRUGS (6)
  1. TRAMETINIB [Suspect]
     Active Substance: TRAMETINIB
     Indication: BRAF GENE MUTATION
  2. TAFINLAR [Suspect]
     Active Substance: DABRAFENIB MESYLATE
     Indication: BRAF GENE MUTATION
     Dosage: 75 MG, BID
     Route: 065
  3. TRAMETINIB [Suspect]
     Active Substance: TRAMETINIB
     Indication: MALIGNANT MELANOMA STAGE IV
     Dosage: 2 MG, QD
     Route: 065
  4. IPILIMUMAB [Suspect]
     Active Substance: IPILIMUMAB
     Indication: PRODUCT USED FOR UNKNOWN INDICATION
     Route: 065
  5. TAFINLAR [Suspect]
     Active Substance: DABRAFENIB MESYLATE
     Indication: MALIGNANT MELANOMA STAGE IV
     Dosage: 150 MG, BID
     Route: 065
  6. NIVOLUMAB [Suspect]
     Active Substance: NIVOLUMAB
     Indication: PRODUCT USED FOR UNKNOWN INDICATION
     Route: 065

REACTIONS (11)
  - Metastases to lung [Unknown]
  - Malignant neoplasm progression [Unknown]
  - Pyrexia [Unknown]
  - Metastases to lymph nodes [Unknown]
  - Incarcerated umbilical hernia [Unknown]
  - Protein S increased [Unknown]
  - Off label use [Unknown]
  - Drug resistance [Fatal]
  - Mechanical ileus [Unknown]
  - Rash [Unknown]
  - Acne [Unknown]
